FAERS Safety Report 6698516-0 (Version None)
Quarter: 2010Q2

REPORT INFORMATION
  Report Type: 
  Country: None (occurrence: None)
  Receive Date: 20100427
  Receipt Date: 20100416
  Transmission Date: 20101027
  Serious: Yes (Hospitalization, Other)
  Sender: FDA-Public Use
  Company Number: US-JNJFOC-20100406073

PATIENT
  Sex: Female
  Weight: 85.73 kg

DRUGS (10)
  1. REMICADE [Suspect]
     Indication: CROHN'S DISEASE
     Route: 042
  2. REMICADE [Suspect]
     Dosage: 3 MONTHS AGO
     Route: 042
  3. PREDNISONE TAB [Concomitant]
     Indication: CROHN'S DISEASE
     Dosage: FOR 4 YEARS
  4. ASACOL [Concomitant]
     Indication: CROHN'S DISEASE
     Dosage: FOR 4 YEARS
  5. REGLAN [Concomitant]
     Indication: NAUSEA
     Dosage: AS NEEDED, FOR 4 YEARS
  6. LEVSIN [Concomitant]
     Indication: CROHN'S DISEASE
     Dosage: 30 MINUTES BEFORE EACH MEAL, FOR 4 YEARS
  7. HYDROCORTISONE [Concomitant]
     Indication: ANORECTAL DISCOMFORT
     Dosage: FOR 3 YEARS
  8. SEROQUEL [Concomitant]
     Indication: SLEEP DISORDER THERAPY
     Dosage: FOR 3 MONTHS
  9. XANAX [Concomitant]
     Indication: ANXIETY
     Dosage: FOR 4 OR 5 YEARS
  10. LORA TAB [Concomitant]
     Indication: PAIN
     Dosage: FOR 2 YEARS

REACTIONS (10)
  - ANTIBODY TEST ABNORMAL [None]
  - CROHN'S DISEASE [None]
  - FEELING ABNORMAL [None]
  - HOSPITALISATION [None]
  - IMPAIRED HEALING [None]
  - PAIN [None]
  - POOR VENOUS ACCESS [None]
  - RECTAL FISTULA REPAIR [None]
  - TOOTH DISORDER [None]
  - VOMITING [None]
